FAERS Safety Report 17044855 (Version 1)
Quarter: 2019Q4

REPORT INFORMATION
  Report Type: Spontaneous
  Country: HU (occurrence: HU)
  Receive Date: 20191118
  Receipt Date: 20191118
  Transmission Date: 20200122
  Serious: Yes (Hospitalization)
  Sender: FDA-Public Use
  Company Number: HU-MYLANLABS-2019M1109317

PATIENT
  Age: 29 Year
  Sex: Female

DRUGS (8)
  1. AVELOX [Suspect]
     Active Substance: MOXIFLOXACIN HYDROCHLORIDE
     Indication: ESCHERICHIA INFECTION
     Dosage: 1 DOSAGE FORM, QD
     Route: 048
     Dates: start: 20190403, end: 20190409
  2. OFTAQUIX [Suspect]
     Active Substance: LEVOFLOXACIN
     Indication: PRODUCT USED FOR UNKNOWN INDICATION
     Dosage: 5 MG/ML
     Route: 047
     Dates: start: 201904
  3. LEVOFLOXACIN. [Suspect]
     Active Substance: LEVOFLOXACIN
     Indication: PROPHYLAXIS
     Dosage: TRADE NAME, DOSAGE, DOSAGE FORM  WERE NOT REPORTED.
     Dates: start: 201903
  4. ZINNAT                             /00454602/ [Suspect]
     Active Substance: CEFUROXIME SODIUM
     Indication: ESCHERICHIA INFECTION
     Dosage: DOSAGE, DOSAGE FORM  WERE NOT REPORTED.
     Route: 048
     Dates: start: 201904
  5. L-THYROXIN                         /00068001/ [Concomitant]
     Active Substance: LEVOTHYROXINE
     Dosage: 50 MICROGRAM
     Route: 048
  6. CIPROFLOXACIN. [Suspect]
     Active Substance: CIPROFLOXACIN
     Indication: ESCHERICHIA INFECTION
     Dosage: TRADE NAME, DOSAGE, DOSAGE FORM  WERE NOT REPORTED.
     Route: 048
     Dates: start: 20190528
  7. MINIRIN [Concomitant]
     Active Substance: DESMOPRESSIN ACETATE
     Route: 048
  8. NORPROLAC [Concomitant]
     Active Substance: QUINAGOLIDE HYDROCHLORIDE

REACTIONS (3)
  - Pain [Not Recovered/Not Resolved]
  - Hypoaesthesia [Not Recovered/Not Resolved]
  - Myalgia [Not Recovered/Not Resolved]

NARRATIVE: CASE EVENT DATE: 201904
